FAERS Safety Report 19230803 (Version 5)
Quarter: 2021Q4

REPORT INFORMATION
  Report Type: Report from Study
  Country: AR (occurrence: AR)
  Receive Date: 20210507
  Receipt Date: 20211207
  Transmission Date: 20220303
  Serious: Yes (Other)
  Sender: FDA-Public Use
  Company Number: AR-TAKEDA-2021TUS029121

PATIENT
  Age: 48 Year
  Sex: Male
  Weight: 82 kg

DRUGS (3)
  1. VELAGLUCERASE ALFA [Suspect]
     Active Substance: VELAGLUCERASE ALFA
     Indication: Gaucher^s disease
     Dosage: 10 DOSAGE FORM
     Route: 042
  2. VELAGLUCERASE ALFA [Suspect]
     Active Substance: VELAGLUCERASE ALFA
     Dosage: UNK, Q2 WEEKS
     Route: 042
  3. VELAGLUCERASE ALFA [Suspect]
     Active Substance: VELAGLUCERASE ALFA
     Dosage: 4000 INTERNATIONAL UNIT
     Route: 042

REACTIONS (5)
  - COVID-19 [Recovering/Resolving]
  - Therapy interrupted [Unknown]
  - Product availability issue [Unknown]
  - Product distribution issue [Unknown]
  - Product dose omission issue [Unknown]

NARRATIVE: CASE EVENT DATE: 20210430
